FAERS Safety Report 7080362-X (Version None)
Quarter: 2010Q4

REPORT INFORMATION
  Report Type: 
  Country: None (occurrence: None)
  Receive Date: 20101103
  Receipt Date: 20101026
  Transmission Date: 20110411
  Serious: Yes (Other)
  Sender: FDA-Public Use
  Company Number: US-JNJFOC-20101007861

PATIENT
  Sex: Female
  Weight: 43.09 kg

DRUGS (2)
  1. INVEGA SUSTENNA [Suspect]
     Indication: MANIA
     Route: 065
  2. INVEGA [Suspect]
     Indication: MANIA
     Route: 048

REACTIONS (10)
  - APHAGIA [None]
  - ASTHENIA [None]
  - COMMUNICATION DISORDER [None]
  - COUGH [None]
  - DECREASED APPETITE [None]
  - DEPRESSION [None]
  - HYPERGLYCAEMIA [None]
  - LUNG NEOPLASM [None]
  - MENTAL IMPAIRMENT [None]
  - SUICIDAL IDEATION [None]
